FAERS Safety Report 5963392-8 (Version None)
Quarter: 2008Q4

REPORT INFORMATION
  Report Type: 
  Country: None (occurrence: None)
  Receive Date: 20081124
  Receipt Date: 20081117
  Transmission Date: 20090506
  Serious: Yes (Hospitalization)
  Sender: FDA-Public Use
  Company Number: B0547233A

PATIENT
  Age: 51 Year
  Sex: Male

DRUGS (4)
  1. ROSIGLITAZONE [Suspect]
     Dosage: 4MG PER DAY
     Route: 065
     Dates: start: 20080717, end: 20081011
  2. SPIRONOLACTONE [Suspect]
     Indication: PROPHYLAXIS
     Dosage: 50MG PER DAY
     Route: 065
     Dates: start: 20080828, end: 20081011
  3. SUPRADYN [Concomitant]
  4. UNKNOWN DRUG [Concomitant]

REACTIONS (2)
  - CHEST PAIN [None]
  - MYOCARDIAL INFARCTION [None]
